FAERS Safety Report 9764872 (Version 2)
Quarter: 2013Q4

REPORT INFORMATION
  Report Type: Spontaneous
  Country: US (occurrence: US)
  Receive Date: 20131217
  Receipt Date: 20131231
  Transmission Date: 20140711
  Serious: No
  Sender: FDA-Public Use
  Company Number: US-BIOGENIDEC-2013BI114882

PATIENT
  Age: 48 Year
  Sex: Female

DRUGS (10)
  1. TECFIDERA [Suspect]
     Indication: MULTIPLE SCLEROSIS
     Route: 048
     Dates: start: 20131029
  2. TECFIDERA [Suspect]
     Indication: MULTIPLE SCLEROSIS
     Dates: end: 201312
  3. AVONEX [Concomitant]
     Route: 030
     Dates: start: 20060203
  4. AVONEX [Concomitant]
     Route: 030
  5. CLONAZEPAM [Concomitant]
  6. FLUOXETINE [Concomitant]
  7. IMITREX [Concomitant]
  8. VITAMIN E [Concomitant]
  9. ZOFRAN [Concomitant]
  10. PAXIL [Concomitant]

REACTIONS (9)
  - Weight decreased [Not Recovered/Not Resolved]
  - Gastrointestinal disorder [Not Recovered/Not Resolved]
  - Nausea [Not Recovered/Not Resolved]
  - Asthenia [Not Recovered/Not Resolved]
  - Flatulence [Not Recovered/Not Resolved]
  - Eating disorder [Unknown]
  - Feeling of body temperature change [Not Recovered/Not Resolved]
  - Vomiting [Unknown]
  - Diarrhoea [Unknown]
